FAERS Safety Report 8920079 (Version 1)
Quarter: 2012Q4

REPORT INFORMATION
  Report Type: 
  Country: CA (occurrence: CA)
  Receive Date: 20121121
  Receipt Date: 20121121
  Transmission Date: 20130627
  Serious: Yes (Hospitalization)
  Sender: FDA-Public Use
  Company Number: CA-AMGEN-CANSP2012068458

PATIENT
  Age: 65 Year
  Sex: Female

DRUGS (4)
  1. ENBREL [Suspect]
     Indication: RHEUMATOID ARTHRITIS
     Dosage: 50 mg, qwk
     Route: 058
     Dates: start: 20040209, end: 201205
  2. METHOTREXATE [Concomitant]
     Indication: RHEUMATOID ARTHRITIS
     Dosage: 10 mg, qwk
     Route: 048
     Dates: end: 201205
  3. ELTROXIN [Concomitant]
     Dosage: UNK
     Route: 048
  4. ACTONEL [Concomitant]
     Dosage: UNK
     Route: 048

REACTIONS (1)
  - Colorectal cancer [Not Recovered/Not Resolved]
